FAERS Safety Report 6570825-5 (Version None)
Quarter: 2010Q1

REPORT INFORMATION
  Report Type: 
  Country: None (occurrence: None)
  Receive Date: 20100204
  Receipt Date: 20100127
  Transmission Date: 20100710
  Serious: Yes (Other)
  Sender: FDA-Public Use
  Company Number: AU-JNJFOC-20100102498

PATIENT
  Age: 54 Year
  Sex: Male

DRUGS (4)
  1. TOPAMAX [Suspect]
     Indication: ATRIAL FIBRILLATION
     Dosage: ONE TABLET IN MORNING AND ONCE AT NIGHT
     Route: 048
  2. ASPIRIN [Concomitant]
     Indication: ATRIAL FIBRILLATION
     Route: 048
  3. TAMBOCOR [Concomitant]
     Indication: ATRIAL FIBRILLATION
     Route: 048
  4. MINAX [Concomitant]
     Indication: ATRIAL FIBRILLATION
     Dosage: HALF A TABLET
     Route: 048

REACTIONS (16)
  - BALANCE DISORDER [None]
  - CONFUSIONAL STATE [None]
  - COORDINATION ABNORMAL [None]
  - DEPRESSION [None]
  - DISORIENTATION [None]
  - DISTURBANCE IN ATTENTION [None]
  - DIZZINESS [None]
  - DRUG DISPENSING ERROR [None]
  - FEELING DRUNK [None]
  - MEMORY IMPAIRMENT [None]
  - PARAESTHESIA [None]
  - READING DISORDER [None]
  - SOMNOLENCE [None]
  - SPEECH DISORDER [None]
  - VISION BLURRED [None]
  - WRONG DRUG ADMINISTERED [None]
